FAERS Safety Report 8926706 (Version 1)
Quarter: 2012Q4

REPORT INFORMATION
  Report Type: 
  Country: GB (occurrence: GB)
  Receive Date: 20121127
  Receipt Date: 20121127
  Transmission Date: 20130627
  Serious: Yes (Hospitalization)
  Sender: FDA-Public Use
  Company Number: GB-PFIZER INC-2012294034

PATIENT
  Age: 66 Year
  Sex: Female
  Weight: 71.4 kg

DRUGS (4)
  1. GENOTROPIN [Suspect]
     Dosage: 0.4 mg, 1x/day,7 injections/week.
     Route: 058
     Dates: start: 20031217
  2. CARBAMAZEPINE [Concomitant]
     Indication: TONIC-CLONIC SEIZURES
     Dosage: UNK
     Dates: start: 20010323
  3. THYROXINE [Concomitant]
     Indication: HYPOTHYROIDISM
     Dosage: UNK
     Dates: start: 20010323
  4. HYDROCORTISONE [Concomitant]
     Indication: ACTH DECREASED
     Dosage: UNK
     Dates: start: 20010323

REACTIONS (1)
  - Bladder disorder [Unknown]
